FAERS Safety Report 8121037-5 (Version None)
Quarter: 2012Q1

REPORT INFORMATION
  Report Type: 
  Country: None (occurrence: None)
  Receive Date: 20120208
  Receipt Date: 20120117
  Transmission Date: 20120608
  Serious: No
  Sender: FDA-Public Use
  Company Number: CA-JNJFOC-20120202723

PATIENT
  Sex: Male
  Weight: 84.5 kg

DRUGS (4)
  1. PURINETHOL [Concomitant]
     Route: 065
  2. REMICADE [Suspect]
     Route: 042
     Dates: start: 20070101
  3. UNKNOWN MEDICATION [Concomitant]
     Indication: HERPES ZOSTER
     Route: 065
  4. REMICADE [Suspect]
     Indication: CROHN'S DISEASE
     Route: 042
     Dates: start: 20090330

REACTIONS (1)
  - HERPES ZOSTER [None]
